FAERS Safety Report 9464189 (Version 2)
Quarter: 2013Q3

REPORT INFORMATION
  Report Type: Spontaneous
  Country: US (occurrence: US)
  Receive Date: 20130819
  Receipt Date: 20130819
  Transmission Date: 20140515
  Serious: Yes (Other)
  Sender: FDA-Public Use
  Company Number: US-PFIZER INC-2013193210

PATIENT
  Age: 56 Year
  Sex: Male

DRUGS (22)
  1. LYRICA [Suspect]
     Indication: PAIN
     Dosage: 100 MG, 3X/DAY PRN
     Route: 048
  2. NORCO [Concomitant]
     Dosage: 1 DF (325- 10 MG), TWICE, OR THREE DAILY
     Route: 048
  3. NORCO [Concomitant]
     Dosage: 1 DF (325- 10 MG), 4X/DAY
  4. DICLOFENAC SODIUM [Concomitant]
     Dosage: 75 MG, 2X/DAY
     Route: 048
  5. MS CONTIN [Concomitant]
     Dosage: 1 DF (15 MG/12 HR TB CR), 3X/DAY
     Route: 048
  6. BACLOFEN [Concomitant]
     Dosage: 10 MG, 2X/DAY
     Route: 048
  7. BACLOFEN [Concomitant]
     Dosage: 10 MG, 3X/DAY
     Route: 048
  8. BACLOFEN [Concomitant]
     Dosage: 10 MG, 4X/DAY
     Route: 048
  9. METHADONE HYDROCHLORIDE [Concomitant]
     Dosage: 10 MG, 3X/DAY
     Route: 048
  10. OPANA [Concomitant]
     Dosage: 10 MG, 3X/DAY
     Route: 048
  11. OPANA [Concomitant]
     Dosage: 10 MG, 4X/DAY
     Route: 048
  12. OPANA [Concomitant]
     Dosage: 20 MG, 2X/DAY
     Route: 048
  13. AMBIEN [Concomitant]
     Dosage: 10 MG, 4X/DAY
     Route: 048
  14. TIZANIDINE HYDROCHLORIDE [Concomitant]
     Dosage: 0.4 MG, 4X/DAY
     Dates: start: 20101008, end: 20101107
  15. AMRIX [Concomitant]
     Dosage: 15 MG, 1X/DAY,  FOUR HOURS BEFORE HS
     Dates: start: 20100917, end: 20101017
  16. ZANAFLEX [Concomitant]
     Dosage: 4 MG, 3X/DAY
     Route: 048
     Dates: start: 20090429, end: 20090529
  17. ROBAXIN [Concomitant]
     Indication: PAIN
     Dosage: 500 MG, 3X/DAY
     Route: 048
     Dates: end: 20090325
  18. NEURONTIN [Concomitant]
     Dosage: 300 MG, 3X/DAY
     Route: 048
  19. LORTAB [Concomitant]
     Dosage: 1 DF, 3X/DAY
     Route: 048
  20. MOBIC [Concomitant]
     Dosage: 7.5 MG, 2X/DAY
     Route: 048
     Dates: start: 20130620, end: 20130702
  21. MORPHINE SULFATE [Concomitant]
     Dosage: 15 MG, 4X/DAY
     Route: 048
  22. MORPHINE SULFATE [Concomitant]
     Dosage: 30 MG, 2X/DAY
     Route: 048

REACTIONS (8)
  - Blood glucose decreased [Recovered/Resolved]
  - Hyperhidrosis [Recovered/Resolved]
  - Feeling cold [Recovered/Resolved]
  - Cold sweat [Recovered/Resolved]
  - Dysarthria [Recovered/Resolved]
  - Back pain [Unknown]
  - Overweight [Unknown]
  - Drug effect incomplete [Unknown]
